FAERS Safety Report 16123868 (Version 1)
Quarter: 2019Q1

REPORT INFORMATION
  Report Type: Spontaneous
  Country: CN (occurrence: CN)
  Receive Date: 20190327
  Receipt Date: 20190327
  Transmission Date: 20190418
  Serious: Yes (Other)
  Sender: FDA-Public Use
  Company Number: CN-PFIZER INC-2019128862

PATIENT
  Age: 72 Year
  Sex: Male
  Weight: 62 kg

DRUGS (7)
  1. LEVOFLOXACIN LACTATE AND SODIUM CHLORIDE [Concomitant]
     Active Substance: LEVOFLOXACIN LACTATE
     Indication: LUNG INFECTION
     Dosage: 0.6 G, 1X/DAY
     Route: 041
     Dates: start: 20181221, end: 20190106
  2. CEFTAZIDIME. [Concomitant]
     Active Substance: CEFTAZIDIME
     Indication: LUNG INFECTION
     Dosage: 2.0 G, 2X/DAY
     Route: 041
     Dates: start: 20181213, end: 20181227
  3. DIFLUCAN [Suspect]
     Active Substance: FLUCONAZOLE
     Indication: LUNG INFECTION
     Dosage: 0.15 G, 1X/DAY
     Route: 048
     Dates: start: 20181228, end: 20190102
  4. VANCOMYCIN HYDROCHLORIDE. [Suspect]
     Active Substance: VANCOMYCIN HYDROCHLORIDE
     Indication: LUNG INFECTION
     Dosage: 1 G, 2X/DAY
     Route: 041
     Dates: start: 20181227, end: 20181230
  5. SODIUM CHLORIDE. [Concomitant]
     Active Substance: SODIUM CHLORIDE
     Dosage: 100 ML, 2X/DAY
     Route: 041
     Dates: start: 20181227, end: 20181230
  6. ETIMICIN SULFATE/SODIUM CHLORIDE [Concomitant]
     Indication: LUNG INFECTION
     Dosage: 100 ML, 2X/DAY
     Route: 041
     Dates: start: 20181213, end: 20181221
  7. SODIUM CHLORIDE. [Concomitant]
     Active Substance: SODIUM CHLORIDE
     Indication: VEHICLE SOLUTION USE
     Dosage: 100 ML, 2X/DAY
     Route: 041
     Dates: start: 20181213, end: 20181227

REACTIONS (1)
  - Renal impairment [Not Recovered/Not Resolved]

NARRATIVE: CASE EVENT DATE: 20181230
